FAERS Safety Report 13061955 (Version 1)
Quarter: 2016Q4

REPORT INFORMATION
  Report Type: Report from Study
  Country: US (occurrence: US)
  Receive Date: 20161226
  Receipt Date: 20161226
  Transmission Date: 20170207
  Serious: No
  Sender: FDA-Public Use
  Company Number: US-AMGEN-USASL2016180776

PATIENT
  Sex: Male

DRUGS (1)
  1. ENBREL [Suspect]
     Active Substance: ETANERCEPT
     Indication: ACTINIC KERATOSIS
     Dosage: 50 MG, QWK
     Route: 065

REACTIONS (3)
  - Pain [Unknown]
  - Drug effect incomplete [Unknown]
  - Off label use [Unknown]
